FAERS Safety Report 14544119 (Version 2)
Quarter: 2018Q1

REPORT INFORMATION
  Report Type: Spontaneous
  Country: CA (occurrence: CA)
  Receive Date: 20180216
  Receipt Date: 20180227
  Transmission Date: 20180509
  Serious: Yes (Other)
  Sender: FDA-Public Use
  Company Number: CA-BEH-2018087949

PATIENT
  Age: 85 Year
  Sex: Male

DRUGS (2)
  1. ALBUREX [Suspect]
     Active Substance: ALBUMIN HUMAN
     Indication: HYPOALBUMINAEMIA
     Dosage: 100 ML, TOT
     Route: 065
     Dates: start: 20180130, end: 20180130
  2. ALBUREX [Suspect]
     Active Substance: ALBUMIN HUMAN
     Dosage: 36 ML, TOT
     Route: 065
     Dates: start: 20180130, end: 20180131

REACTIONS (2)
  - Transfusion-associated dyspnoea [Recovered/Resolved]
  - Dyspnoea [Recovered/Resolved]

NARRATIVE: CASE EVENT DATE: 20180131
